FAERS Safety Report 12972708 (Version 1)
Quarter: 2016Q4

REPORT INFORMATION
  Report Type: Spontaneous
  Country: US (occurrence: US)
  Receive Date: 20161124
  Receipt Date: 20161124
  Transmission Date: 20170207
  Serious: Yes (Other)
  Sender: FDA-Public Use
  Company Number: US-APOTEX-2016AP014935

PATIENT
  Age: 51 Year
  Sex: Male

DRUGS (1)
  1. LOSARTAN POTASSIUM FILM-COATED TABLETS [Suspect]
     Active Substance: LOSARTAN POTASSIUM
     Indication: ESSENTIAL HYPERTENSION
     Dosage: 50 MG, QD
     Route: 065

REACTIONS (3)
  - Peripheral swelling [Recovered/Resolved]
  - Scrotal swelling [Recovered/Resolved]
  - Intestinal angioedema [Recovered/Resolved]
